FAERS Safety Report 11334594 (Version 2)
Quarter: 2017Q3

REPORT INFORMATION
  Report Type: Spontaneous
  Country: US (occurrence: US)
  Receive Date: 20150804
  Receipt Date: 20170725
  Transmission Date: 20171127
  Serious: Yes (Other)
  Sender: FDA-Public Use
  Company Number: US-CIPLA LTD.-2015US06243

PATIENT

DRUGS (2)
  1. REOLYSIN [Suspect]
     Active Substance: PELAREOREP
     Indication: PANCREATIC CARCINOMA
     Dosage: 1X10^10 TCID50, ON DAYS 1, 2, 8, AND 9
     Route: 042
     Dates: start: 201203
  2. GEMCITABINE [Suspect]
     Active Substance: GEMCITABINE\GEMCITABINE HYDROCHLORIDE
     Indication: PANCREATIC CARCINOMA
     Dosage: 800 MG/M2, ON DAYS 1 AND 8, WITH 21-DAY CYCLES
     Route: 042
     Dates: start: 201203

REACTIONS (5)
  - Disease progression [Unknown]
  - Bile duct obstruction [Unknown]
  - Thrombocytopenia [Unknown]
  - Pyrexia [Unknown]
  - Neutropenia [Unknown]
